FAERS Safety Report 7623697-1 (Version None)
Quarter: 2011Q3

REPORT INFORMATION
  Report Type: 
  Country: None (occurrence: None)
  Receive Date: 20110720
  Receipt Date: 20110715
  Transmission Date: 20111222
  Serious: Yes (Death, Hospitalization)
  Sender: FDA-Public Use
  Company Number: US-GLAXOSMITHKLINE-A0882147A

PATIENT
  Age: 65 Year
  Sex: Male

DRUGS (1)
  1. AVANDIA [Suspect]
     Indication: TYPE 2 DIABETES MELLITUS
     Route: 048
     Dates: start: 20041201, end: 20070401

REACTIONS (14)
  - CARDIAC FAILURE CONGESTIVE [None]
  - TRAUMATIC LUNG INJURY [None]
  - PULMONARY HAEMORRHAGE [None]
  - INTERSTITIAL LUNG DISEASE [None]
  - COR PULMONALE [None]
  - COUGH [None]
  - CARDIOMYOPATHY [None]
  - BRONCHIAL OBSTRUCTION [None]
  - DYSPNOEA [None]
  - PULMONARY HYPERTENSION [None]
  - TRACHEAL HAEMORRHAGE [None]
  - FALL [None]
  - TRACHEAL OBSTRUCTION [None]
  - DIZZINESS [None]
